FAERS Safety Report 10174927 (Version 1)
Quarter: 2014Q2

REPORT INFORMATION
  Report Type: Spontaneous
  Country: KR (occurrence: KR)
  Receive Date: 20140515
  Receipt Date: 20140515
  Transmission Date: 20141212
  Serious: Yes (Death, Hospitalization)
  Sender: FDA-Public Use
  Company Number: KR-MYLANLABS-2014S1010486

PATIENT
  Age: 64 Year
  Sex: Female

DRUGS (4)
  1. CISPLATIN [Suspect]
     Indication: LUNG ADENOCARCINOMA STAGE IV
     Dosage: 75 MG/M2 EVERY 3 WEEKS.
     Route: 065
  2. SIROLIMUS [Interacting]
     Indication: IMMUNOSUPPRESSION
     Dosage: 2 MG/DAY
     Route: 065
     Dates: start: 201104
  3. SIMVASTATIN [Interacting]
     Indication: DYSLIPIDAEMIA
     Dosage: 20 MG/DAY.
     Route: 065
  4. GEMCITABINE [Concomitant]
     Indication: LUNG ADENOCARCINOMA STAGE IV
     Dosage: 1250 MG/M2 EVERY 3 WEEKS
     Route: 065

REACTIONS (5)
  - Drug interaction [Fatal]
  - Rhabdomyolysis [Fatal]
  - Renal failure acute [Fatal]
  - Disseminated intravascular coagulation [Fatal]
  - Hypophagia [Unknown]
